FAERS Safety Report 7949654-3 (Version None)
Quarter: 2011Q4

REPORT INFORMATION
  Report Type: 
  Country: None (occurrence: None)
  Receive Date: 20111130
  Receipt Date: 20111117
  Transmission Date: 20120403
  Serious: Yes (Hospitalization)
  Sender: FDA-Public Use
  Company Number: US-ACTELION-A-US2011-57328

PATIENT

DRUGS (2)
  1. EPOPROSTENOL SODIUM [Suspect]
     Indication: PULMONARY ARTERIAL HYPERTENSION
     Dosage: 38 NG/KG, PER MIN
     Route: 042
     Dates: start: 20100818
  2. CIPROFLOXACIN [Suspect]

REACTIONS (4)
  - PAIN IN EXTREMITY [None]
  - RENAL FAILURE [None]
  - HYPERSENSITIVITY [None]
  - DIVERTICULITIS [None]
